FAERS Safety Report 24638683 (Version 1)
Quarter: 2024Q4

REPORT INFORMATION
  Report Type: Spontaneous
  Country: US (occurrence: US)
  Receive Date: 20241119
  Receipt Date: 20241119
  Transmission Date: 20250115
  Serious: Yes (Other)
  Sender: RANBAXY
  Company Number: US-SUN PHARMACEUTICAL INDUSTRIES LTD-2024R1-479651

PATIENT
  Age: 67 Year
  Sex: Female

DRUGS (1)
  1. OXYCODONE [Suspect]
     Active Substance: OXYCODONE
     Indication: Prophylaxis
     Dosage: UNK
     Route: 065

REACTIONS (2)
  - Respiratory depression [Unknown]
  - Therapy partial responder [Unknown]
